FAERS Safety Report 4697982-X (Version None)
Quarter: 2005Q2

REPORT INFORMATION
  Report Type: 
  Country: None (occurrence: None)
  Receive Date: 20050621
  Receipt Date: 20050613
  Transmission Date: 20051028
  Serious: Yes (Other)
  Sender: FDA-Public Use
  Company Number: GRP05000084

PATIENT
  Age: 66 Year
  Sex: Female
  Weight: 68 kg

DRUGS (2)
  1. ACTONEL [Suspect]
     Indication: OSTEOPOROSIS
     Dosage: 35 MG, 1/WEEK, ORAL
     Route: 048
     Dates: start: 20040501
  2. VIGANTOLETTEN  MERCK (COLECALCIFEROL) [Concomitant]

REACTIONS (3)
  - RETINAL HAEMORRHAGE [None]
  - RETINAL TEAR [None]
  - VISUAL ACUITY REDUCED [None]
